FAERS Safety Report 12954822 (Version 1)
Quarter: 2016Q4

REPORT INFORMATION
  Report Type: Spontaneous
  Country: US (occurrence: US)
  Receive Date: 20161118
  Receipt Date: 20161118
  Transmission Date: 20170207
  Serious: Yes (Disabling)
  Sender: FDA-Public Use
  Company Number: None

PATIENT
  Age: 26 Year
  Sex: Female
  Weight: 63.45 kg

DRUGS (4)
  1. PROBIOTIC [Concomitant]
     Active Substance: PROBIOTICS NOS
  2. COLACE [Concomitant]
     Active Substance: DOCUSATE SODIUM
  3. AMOXICILLIN-CLA- UVULANATE [Suspect]
     Active Substance: AMOXICILLIN\CLAVULANATE POTASSIUM
     Indication: SINUSITIS BACTERIAL
     Dosage: QUANTITY:20 TABLET(S); TWICE A DAY; ORAL?
     Route: 048
     Dates: start: 20161010, end: 20161016
  4. FIBER [Concomitant]
     Active Substance: PSYLLIUM HUSK

REACTIONS (5)
  - Abdominal pain [None]
  - Proctalgia [None]
  - Muscle spasms [None]
  - Abdominal distension [None]
  - Constipation [None]

NARRATIVE: CASE EVENT DATE: 20161102
